FAERS Safety Report 7069686-X (Version None)
Quarter: 2010Q4

REPORT INFORMATION
  Report Type: 
  Country: None (occurrence: None)
  Receive Date: 20101028
  Receipt Date: 20100507
  Transmission Date: 20110411
  Serious: No
  Sender: FDA-Public Use
  Company Number: US-WYE-H15069110

PATIENT
  Sex: Female
  Weight: 78.54 kg

DRUGS (11)
  1. PROTONIX [Suspect]
     Indication: GASTROOESOPHAGEAL REFLUX DISEASE
     Route: 048
  2. PROTONIX [Suspect]
     Route: 048
  3. PROTONIX [Suspect]
     Route: 048
  4. SYNTHROID [Concomitant]
     Indication: THYROIDECTOMY
     Dosage: 100 UG, FREQUENCY UNKNOWN
  5. DOXAZOSIN MESYLATE [Concomitant]
     Indication: HYPERTENSION
     Dosage: UNKNOWN
     Dates: end: 20100505
  6. WARFARIN SODIUM [Suspect]
     Indication: ATRIAL FLUTTER
     Dosage: UNKNOWN
  7. BENICAR [Concomitant]
     Indication: HYPERTENSION
     Dosage: 4/25 MG, FREQUENCY UNKNOWN
  8. TOPROL-XL [Concomitant]
     Indication: HYPERTENSION
     Dosage: 100 MG, FREQUENY UNKNOWN
  9. SIMVASTATIN [Concomitant]
     Indication: BLOOD CHOLESTEROL INCREASED
     Dosage: 20 MG, FREQUENCY UNKNOWN
  10. BONIVA [Concomitant]
     Indication: BONE DISORDER
     Dosage: UNKNOWN DOSE, GETS AN INJECTION EVERY 3 MONTHS
  11. NIFEDIPINE [Concomitant]
     Indication: HYPERTENSION
     Dosage: 30 MG, FREQUENCY UNKNOWN
     Dates: start: 20100506

REACTIONS (3)
  - ATRIAL FLUTTER [None]
  - GASTRIC DISORDER [None]
  - HAEMOPTYSIS [None]
